FAERS Safety Report 6041706-0 (Version None)
Quarter: 2009Q1

REPORT INFORMATION
  Report Type: 
  Country: None (occurrence: None)
  Receive Date: 20090116
  Receipt Date: 20090115
  Transmission Date: 20090719
  Serious: Yes (Life-Threatening, Hospitalization, Other)
  Sender: FDA-Public Use
  Company Number: CA-ASTRAZENECA-2009UW01266

PATIENT
  Age: 2 Month
  Sex: Male
  Weight: 5 kg

DRUGS (7)
  1. EMLA [Suspect]
     Route: 061
  2. ACETAMINOPHEN [Concomitant]
     Route: 048
  3. AMPICILLIN [Concomitant]
     Route: 042
  4. CEFAZOLIN [Concomitant]
     Route: 042
  5. CEFOTAXIME [Concomitant]
     Route: 042
  6. NYSTATIN [Concomitant]
  7. ZINC OXIDE [Concomitant]

REACTIONS (4)
  - BLOOD METHAEMOGLOBIN [None]
  - HAEMOGLOBIN DECREASED [None]
  - LETHARGY [None]
  - PALLOR [None]
